FAERS Safety Report 8394965-3 (Version None)
Quarter: 2012Q2

REPORT INFORMATION
  Report Type: 
  Country: None (occurrence: None)
  Receive Date: 20120530
  Receipt Date: 20120201
  Transmission Date: 20120825
  Serious: No
  Sender: FDA-Public Use
  Company Number: US-GLAXOSMITHKLINE-A0964384A

PATIENT
  Age: 33 Year
  Sex: Female
  Weight: 64.9 kg

DRUGS (2)
  1. LASIX [Concomitant]
     Dosage: 40MG PER DAY
     Route: 048
  2. FLOLAN [Suspect]
     Indication: PULMONARY ARTERIAL HYPERTENSION
     Dosage: 12NGKM UNKNOWN
     Route: 065
     Dates: start: 20120201

REACTIONS (2)
  - PAIN IN JAW [None]
  - DIARRHOEA [None]
